FAERS Safety Report 7532962-8 (Version None)
Quarter: 2011Q2

REPORT INFORMATION
  Report Type: 
  Country: None (occurrence: None)
  Receive Date: 20110608
  Receipt Date: 20110604
  Transmission Date: 20111010
  Serious: Yes (Other)
  Sender: FDA-Public Use
  Company Number: US-PFIZER INC-2011122073

PATIENT
  Sex: Female
  Weight: 9.52 kg

DRUGS (3)
  1. CHILDREN'S MOTRIN [Concomitant]
     Indication: PYREXIA
     Dosage: UNK
  2. AMOXICILLIN [Concomitant]
     Indication: EAR INFECTION
     Dosage: UNK
  3. CHILDREN'S ADVIL [Suspect]
     Indication: PYREXIA
     Dosage: 1.875 ML, 2X/DAY
     Route: 048
     Dates: start: 20110603, end: 20110604

REACTIONS (2)
  - RASH GENERALISED [None]
  - OFF LABEL USE [None]
